FAERS Safety Report 5288467-0 (Version None)
Quarter: 2007Q2

REPORT INFORMATION
  Report Type: 
  Country: None (occurrence: None)
  Receive Date: 20070405
  Receipt Date: 20070330
  Transmission Date: 20071010
  Serious: No
  Sender: FDA-Public Use
  Company Number: 2006UW10981

PATIENT
  Sex: Female
  Weight: 74.5 kg

DRUGS (7)
  1. SEROQUEL [Suspect]
     Indication: SCHIZOPHRENIA
     Route: 048
     Dates: start: 20010101, end: 20010101
  2. SEROQUEL [Suspect]
     Indication: BIPOLAR DISORDER
     Route: 048
     Dates: start: 20010101, end: 20010101
  3. SEROQUEL [Suspect]
     Indication: DEPRESSION
     Route: 048
     Dates: start: 20010101, end: 20010101
  4. RISPERDAL [Concomitant]
  5. THORAZINE [Concomitant]
  6. ZYPREXA [Concomitant]
  7. KLONOPIN [Concomitant]

REACTIONS (1)
  - HYPERGLYCAEMIA [None]
